FAERS Safety Report 21440986 (Version 1)
Quarter: 2022Q4

REPORT INFORMATION
  Report Type: Spontaneous
  Country: NO (occurrence: NO)
  Receive Date: 20221011
  Receipt Date: 20221011
  Transmission Date: 20230112
  Serious: Yes (Life-Threatening, Other)
  Sender: FDA-Public Use
  Company Number: None

PATIENT
  Age: 58 Year
  Sex: Male

DRUGS (1)
  1. NEURONTIN [Suspect]
     Active Substance: GABAPENTIN
     Indication: Neuralgia
     Dosage: QD, 6 CAPSULES PER DAY
     Route: 065
     Dates: start: 2022, end: 202208

REACTIONS (8)
  - Respiratory arrest [Recovered/Resolved]
  - Fear of death [Unknown]
  - Daydreaming [Unknown]
  - Muscle spasms [Recovered/Resolved]
  - Quality of life decreased [Unknown]
  - Gait disturbance [Unknown]
  - Asthenia [Unknown]
  - Dizziness [Unknown]

NARRATIVE: CASE EVENT DATE: 20220101
